FAERS Safety Report 6608676-5 (Version None)
Quarter: 2010Q1

REPORT INFORMATION
  Report Type: 
  Country: None (occurrence: None)
  Receive Date: 20100224
  Receipt Date: 20100224
  Transmission Date: 20100710
  Serious: No
  Sender: FDA-Public Use
  Company Number: None

PATIENT
  Age: 21 Year
  Sex: Male
  Weight: 72.5755 kg

DRUGS (4)
  1. RISPERIDONE [Suspect]
     Dosage: 75MG DAY PO
     Route: 048
  2. HALDOL CONCENTRATE [Concomitant]
  3. FISH OIL [Concomitant]
  4. COGENTIN [Concomitant]

REACTIONS (2)
  - AKATHISIA [None]
  - EXTRAPYRAMIDAL DISORDER [None]
